FAERS Safety Report 19880387 (Version 1)
Quarter: 2021Q3

REPORT INFORMATION
  Report Type: Spontaneous
  Country: AR (occurrence: US)
  Receive Date: 20210924
  Receipt Date: 20210924
  Transmission Date: 20211014
  Serious: Yes (Other)
  Sender: FDA-Public Use
  Company Number: AR-BAYER-2021A215887

PATIENT
  Age: 27 Year
  Sex: Female

DRUGS (1)
  1. BLUSIRI [Suspect]
     Active Substance: LEVONORGESTREL
     Dosage: 14 ?G, CONT
     Route: 015
     Dates: end: 202011

REACTIONS (1)
  - Uterine perforation [None]

NARRATIVE: CASE EVENT DATE: 202011
